FAERS Safety Report 8229214-X (Version None)
Quarter: 2012Q1

REPORT INFORMATION
  Report Type: 
  Country: None (occurrence: None)
  Receive Date: 20120322
  Receipt Date: 20120320
  Transmission Date: 20120608
  Serious: Yes (Death, Life-Threatening, Hospitalization)
  Sender: FDA-Public Use
  Company Number: DE-BRISTOL-MYERS SQUIBB COMPANY-15721194

PATIENT
  Age: 49 Year
  Sex: Male
  Weight: 61 kg

DRUGS (12)
  1. DEXAMETHASONE [Concomitant]
     Dates: start: 20101101
  2. PEMETREXED DISODIUM [Suspect]
     Indication: HEAD AND NECK CANCER
     Dosage: LAST DOSE ON 13APR11.
     Route: 042
     Dates: start: 20110302
  3. LAMOTRIGINE [Concomitant]
     Indication: PROPHYLAXIS
     Dates: start: 20110205
  4. CETUXIMAB [Suspect]
     Indication: HEAD AND NECK CANCER
     Dosage: 1ST DOSE 400MG/M2 THEN WK 250MG/M2 ON DAY 1 CYCLE 1. ON 2MAR11:1DAY-ONG-UNK RECENT INF:20APR2011
     Route: 042
     Dates: start: 20110302
  5. LACTULOSE [Concomitant]
     Indication: PROPHYLAXIS
  6. MORPHINE [Concomitant]
     Dates: start: 20110203
  7. FOLIC ACID [Concomitant]
  8. FENTANYL [Concomitant]
     Indication: PROPHYLAXIS
     Dates: start: 20110203
  9. PANTOPRAZOLE [Concomitant]
     Indication: PROPHYLAXIS
     Dates: start: 20110205
  10. LYRICA [Concomitant]
     Indication: PROPHYLAXIS
     Dates: start: 20110203
  11. VITAMIN B-12 [Concomitant]
  12. CISPLATIN [Suspect]
     Indication: HEAD AND NECK CANCER
     Dosage: RECENT INF:13APR2011
     Route: 042
     Dates: start: 20110302

REACTIONS (3)
  - ASTERIXIS [None]
  - PNEUMONIA ASPIRATION [None]
  - SYNCOPE [None]
